FAERS Safety Report 11335289 (Version 1)
Quarter: 2015Q3

REPORT INFORMATION
  Report Type: Spontaneous
  Country: US (occurrence: None)
  Receive Date: 20150731
  Receipt Date: 20150731
  Transmission Date: 20151125
  Serious: No
  Sender: FDA-Public Use
  Company Number: None

PATIENT
  Age: 65 Year
  Sex: Male

DRUGS (21)
  1. LISINOPRIL. [Concomitant]
     Active Substance: LISINOPRIL
  2. COLCHICINE. [Concomitant]
     Active Substance: COLCHICINE
  3. SOTALOL. [Concomitant]
     Active Substance: SOTALOL
  4. FOLIC ACID. [Concomitant]
     Active Substance: FOLIC ACID
  5. MORPHINE [Concomitant]
     Active Substance: MORPHINE
  6. HYDROMORPHONE [Concomitant]
     Active Substance: HYDROMORPHONE
  7. LANSOPRAZOLE. [Concomitant]
     Active Substance: LANSOPRAZOLE
  8. CARVEDILOL. [Concomitant]
     Active Substance: CARVEDILOL
  9. POLYETHYLENE GLYCOL 3350. [Concomitant]
     Active Substance: POLYETHYLENE GLYCOL 3350
  10. VANCOMYCIN [Concomitant]
     Active Substance: VANCOMYCIN
  11. WARFARIN [Suspect]
     Active Substance: WARFARIN
     Indication: ATRIAL FIBRILLATION
     Route: 048
     Dates: start: 20141121
  12. DOCUSATE [Concomitant]
     Active Substance: DOCUSATE
  13. FISH OIL [Concomitant]
     Active Substance: FISH OIL
  14. MIRTAZAPINE. [Concomitant]
     Active Substance: MIRTAZAPINE
  15. ATORVASTATIN [Concomitant]
     Active Substance: ATORVASTATIN
  16. CEFEPIME [Concomitant]
     Active Substance: CEFEPIME HYDROCHLORIDE
  17. DIGOXIN. [Concomitant]
     Active Substance: DIGOXIN
  18. LORAZEPAM. [Concomitant]
     Active Substance: LORAZEPAM
  19. SENNA [Concomitant]
     Active Substance: SENNA LEAF\SENNOSIDES\SENNOSIDES A AND B
  20. FEBUXOSTAT. [Concomitant]
     Active Substance: FEBUXOSTAT
  21. MEXILETINE [Concomitant]
     Active Substance: MEXILETINE

REACTIONS (1)
  - International normalised ratio increased [None]

NARRATIVE: CASE EVENT DATE: 20141121
